FAERS Safety Report 21850315 (Version 1)
Quarter: 2023Q1

REPORT INFORMATION
  Report Type: Spontaneous
  Country: None (occurrence: CA)
  Receive Date: 20230111
  Receipt Date: 20230111
  Transmission Date: 20230417
  Serious: Yes (Other)
  Sender: FDA-Public Use
  Company Number: CA-B.Braun Medical Inc.-2136603

PATIENT
  Age: 61 Year
  Sex: Female

DRUGS (23)
  1. ACETAMINOPHEN [Suspect]
     Active Substance: ACETAMINOPHEN
  2. AZITHROMYCIN ANHYDROUS [Suspect]
     Active Substance: AZITHROMYCIN ANHYDROUS
  3. DIBUCAINE HYDROCHLORIDE\HYDROCORTISONE [Suspect]
     Active Substance: DIBUCAINE HYDROCHLORIDE\HYDROCORTISONE
  4. FLUOXETINE HYDROCHLORIDE [Suspect]
     Active Substance: FLUOXETINE HYDROCHLORIDE
  5. LACTASE [Suspect]
     Active Substance: LACTASE
  6. LOPERAMIDE [Suspect]
     Active Substance: LOPERAMIDE
  7. METFORMIN [Suspect]
     Active Substance: METFORMIN HYDROCHLORIDE
  8. MOMETASONE FUROATE\SALICYLIC ACID [Suspect]
     Active Substance: MOMETASONE FUROATE\SALICYLIC ACID
  9. NITROFURANTOIN [Suspect]
     Active Substance: NITROFURANTOIN
  10. NITROGLYCERIN [Suspect]
     Active Substance: NITROGLYCERIN
  11. PREDNISONE [Suspect]
     Active Substance: PREDNISONE
  12. QUINAPRIL [Suspect]
     Active Substance: QUINAPRIL
  13. GLYCOPYRROLATE [Suspect]
     Active Substance: GLYCOPYRROLATE
  14. BETAMETHASONE [Suspect]
     Active Substance: BETAMETHASONE
  15. COMBIVENT [Suspect]
     Active Substance: ALBUTEROL SULFATE\IPRATROPIUM BROMIDE
  16. ATROVENT [Suspect]
     Active Substance: IPRATROPIUM BROMIDE
  17. PINAVERIUM BROMIDE [Suspect]
     Active Substance: PINAVERIUM BROMIDE
  18. DIMENHYDRINATE [Suspect]
     Active Substance: DIMENHYDRINATE
  19. FLOVENT [Suspect]
     Active Substance: FLUTICASONE PROPIONATE
  20. FUROSEMIDE [Suspect]
     Active Substance: FUROSEMIDE
  21. ALBUTEROL [Suspect]
     Active Substance: ALBUTEROL
  22. THEOPHYLLINE IN DEXTROSE [Suspect]
     Active Substance: DEXTROSE MONOHYDRATE\THEOPHYLLINE\THEOPHYLLINE ANHYDROUS
  23. UNIPHYL [Suspect]
     Active Substance: THEOPHYLLINE ANHYDROUS

REACTIONS (31)
  - Angina pectoris [Unknown]
  - Appetite disorder [Unknown]
  - Asthma [Unknown]
  - Chest discomfort [Unknown]
  - Chest pain [Unknown]
  - Cough [Unknown]
  - Depressed mood [Unknown]
  - Depressive symptom [Unknown]
  - Dyspnoea [Unknown]
  - Dyspnoea exertional [Unknown]
  - Fall [Unknown]
  - Flank pain [Unknown]
  - Heart sounds [Unknown]
  - Influenza [Unknown]
  - Injury [Unknown]
  - Insomnia [Unknown]
  - Lower respiratory tract infection [Unknown]
  - Malaise [Unknown]
  - Nasal congestion [Unknown]
  - Nasopharyngitis [Unknown]
  - Productive cough [None]
  - Prolonged expiration [Unknown]
  - Pyrexia [Unknown]
  - Rales [Unknown]
  - Respiration abnormal [Unknown]
  - Rhinorrhoea [Unknown]
  - Sleep disorder due to a general medical condition [Unknown]
  - Stress [Unknown]
  - Upper respiratory tract infection [Unknown]
  - Weight decreased [Unknown]
  - Wheezing [Unknown]
